FAERS Safety Report 5350377-8 (Version None)
Quarter: 2007Q2

REPORT INFORMATION
  Report Type: 
  Country: None (occurrence: None)
  Receive Date: 20070606
  Receipt Date: 20070606
  Transmission Date: 20071010
  Serious: Yes (Other)
  Sender: FDA-Public Use
  Company Number: None

PATIENT
  Sex: Female
  Weight: 56.6996 kg

DRUGS (1)
  1. GAMMAGARD S/D [Suspect]
     Indication: MULTIPLE SCLEROSIS
     Dosage: 30GM QD IV DRIP
     Route: 041
     Dates: start: 20070515, end: 20070518

REACTIONS (1)
  - RASH MACULAR [None]
